FAERS Safety Report 5285447-6 (Version None)
Quarter: 2007Q1

REPORT INFORMATION
  Report Type: 
  Country: None (occurrence: None)
  Receive Date: 20070328
  Receipt Date: 20070320
  Transmission Date: 20070707
  Serious: Yes (Death)
  Sender: FDA-Public Use
  Company Number: 2007US000269

PATIENT
  Age: 67 Year
  Sex: Female
  Weight: 87.5 kg

DRUGS (9)
  1. TACROLIMUS [Suspect]
     Indication: KIDNEY TRANSPLANT REJECTION
     Dosage: 1 MG BID
     Dates: start: 20060219, end: 20061001
  2. NEXIUM [Concomitant]
  3. PHOSLO [Concomitant]
  4. DIATX (FOLIC ACID, PYRIDOXINE) [Concomitant]
  5. PROAMATINE [Concomitant]
  6. PROTONIX [Concomitant]
  7. RENAGEL (SEVELAMER) [Concomitant]
  8. DAPSONE [Concomitant]
  9. PREDNISONE TAB [Concomitant]

REACTIONS (10)
  - ATRIAL FIBRILLATION [None]
  - CALCIPHYLAXIS [None]
  - DIALYSIS [None]
  - DISSEMINATED INTRAVASCULAR COAGULATION [None]
  - DYSPNOEA [None]
  - ENCEPHALITIS [None]
  - HYPOTENSION [None]
  - MALAISE [None]
  - SEPSIS [None]
  - WOUND [None]
